FAERS Safety Report 16154444 (Version 2)
Quarter: 2019Q2

REPORT INFORMATION
  Report Type: Report from Study
  Country: IT (occurrence: IT)
  Receive Date: 20190403
  Receipt Date: 20190610
  Transmission Date: 20190711
  Serious: Yes (Hospitalization)
  Sender: FDA-Public Use
  Company Number: IT-ACCORD-117759

PATIENT
  Age: 66 Year
  Sex: Male

DRUGS (6)
  1. BISOPROLOL [Suspect]
     Active Substance: BISOPROLOL
     Indication: HYPERTENSION
     Dosage: DATE AND TIME OF LAST ADMINISTRATION: 01-JAN-2019
     Route: 048
     Dates: start: 20190101
  2. PANTOPRAZOLE [Suspect]
     Active Substance: PANTOPRAZOLE
     Indication: PRODUCT USED FOR UNKNOWN INDICATION
     Dosage: DATE AND TIME OF LAST ADMINISTRATION: 01-JAN-2019
     Route: 048
     Dates: start: 20190101
  3. TORVAST [Suspect]
     Active Substance: ATORVASTATIN
     Indication: DYSLIPIDAEMIA
     Dosage: DATE AND TIME OF LAST ADMINISTRATION: 01-JAN-2019
     Route: 048
     Dates: start: 20190101
  4. LORAZEPAM. [Suspect]
     Active Substance: LORAZEPAM
     Indication: ANXIETY
     Dosage: DATE AND TIME OF LAST ADMINISTRATION: 01-JAN-2019
     Route: 048
     Dates: start: 20190101
  5. ARIPIPRAZOLE. [Suspect]
     Active Substance: ARIPIPRAZOLE
     Indication: PRODUCT USED FOR UNKNOWN INDICATION
     Dosage: DATE AND TIME OF LAST ADMINISTRATION: 01-JAN-2019
     Route: 048
     Dates: start: 20190101
  6. CARDIOASPIRIN [Suspect]
     Active Substance: ASPIRIN
     Indication: PRODUCT USED FOR UNKNOWN INDICATION
     Dosage: DATE AND TIME OF LAST ADMINISTRATION: 01-JAN-2019
     Route: 048
     Dates: start: 20190101

REACTIONS (2)
  - Drug abuse [Unknown]
  - Sluggishness [Recovered/Resolved]

NARRATIVE: CASE EVENT DATE: 20190101
